FAERS Safety Report 19388263 (Version 1)
Quarter: 2021Q2

REPORT INFORMATION
  Report Type: Spontaneous
  Country: US (occurrence: US)
  Receive Date: 20210607
  Receipt Date: 20210607
  Transmission Date: 20210717
  Serious: No
  Sender: FDA-Public Use
  Company Number: US-PERRIGO-21US004014

PATIENT
  Age: 78 Year
  Sex: Male
  Weight: 76.19 kg

DRUGS (1)
  1. MINOXIDIL. [Suspect]
     Active Substance: MINOXIDIL
     Indication: ALOPECIA
     Dosage: 1/2 CAPFUL, BID
     Route: 061
     Dates: start: 202009, end: 20210315

REACTIONS (6)
  - Application site ulcer [Recovering/Resolving]
  - Application site pain [Recovering/Resolving]
  - Application site scab [Recovering/Resolving]
  - Application site haemorrhage [Recovering/Resolving]
  - Application site pruritus [Recovering/Resolving]
  - Dandruff [Recovering/Resolving]

NARRATIVE: CASE EVENT DATE: 202012
